FAERS Safety Report 5394792-5 (Version None)
Quarter: 2007Q3

REPORT INFORMATION
  Report Type: 
  Country: None (occurrence: None)
  Receive Date: 20070723
  Receipt Date: 20070711
  Transmission Date: 20080115
  Serious: Yes (Other)
  Sender: FDA-Public Use
  Company Number: US-PFIZER INC-2007058533

PATIENT
  Sex: Female
  Weight: 52.2 kg

DRUGS (8)
  1. CHANTIX [Suspect]
     Indication: SMOKING CESSATION THERAPY
  2. FENTANYL TRANSDERMAL SYSTEM [Interacting]
     Indication: ANAESTHESIA
     Dates: start: 20070709, end: 20070709
  3. VERSED [Interacting]
     Indication: ANAESTHESIA
     Dates: start: 20070709, end: 20070709
  4. DILAUDID [Interacting]
     Indication: PAIN
  5. CLONIDINE [Concomitant]
     Route: 048
  6. ATACAND HCT [Concomitant]
     Route: 048
  7. ATENOLOL [Concomitant]
     Route: 048
  8. LISINOPRIL [Concomitant]
     Route: 048

REACTIONS (4)
  - ANAESTHETIC COMPLICATION [None]
  - ANGIOPLASTY [None]
  - DRUG INEFFECTIVE [None]
  - DRUG INTERACTION [None]
